FAERS Safety Report 24999009 (Version 1)
Quarter: 2025Q1

REPORT INFORMATION
  Report Type: Spontaneous
  Country: US (occurrence: US)
  Receive Date: 20250222
  Receipt Date: 20250222
  Transmission Date: 20250408
  Serious: No
  Sender: SANOFI AVENTIS
  Company Number: US-SA-2025SA045934

PATIENT
  Sex: Female

DRUGS (10)
  1. DUPIXENT [Suspect]
     Active Substance: DUPILUMAB
     Indication: Dermatitis atopic
     Route: 058
  2. FISH OIL [Concomitant]
     Active Substance: FISH OIL
  3. FLUTICASONE [Concomitant]
     Active Substance: FLUTICASONE
  4. GUAIFENESIN [Concomitant]
     Active Substance: GUAIFENESIN
  5. PRILOSEC OTC [Concomitant]
     Active Substance: OMEPRAZOLE MAGNESIUM
  6. SERTRALINE HYDROCHLORIDE [Concomitant]
     Active Substance: SERTRALINE HYDROCHLORIDE
  7. TYLENOL [Concomitant]
     Active Substance: ACETAMINOPHEN
  8. CYANOCOBALAMIN [Concomitant]
     Active Substance: CYANOCOBALAMIN
  9. VITAMIN D3 [Concomitant]
     Active Substance: CHOLECALCIFEROL
  10. ZINC [Concomitant]
     Active Substance: ZINC

REACTIONS (5)
  - Pain [Not Recovered/Not Resolved]
  - COVID-19 [Not Recovered/Not Resolved]
  - Dry skin [Not Recovered/Not Resolved]
  - Pruritus [Not Recovered/Not Resolved]
  - Arthralgia [Not Recovered/Not Resolved]
